FAERS Safety Report 9292676 (Version 1)
Quarter: 2013Q1

REPORT INFORMATION
  Report Type: Spontaneous
  Country: US (occurrence: None)
  Receive Date: 20121212
  Receipt Date: 20121212
  Transmission Date: 20140127
  Serious: No
  Sender: FDA-Public Use
  Company Number: 1210USA007745

PATIENT
  Age: 63 Year
  Sex: Male

DRUGS (3)
  1. REBETOL [Suspect]
     Indication: HEPATITIS C
     Dosage: UNK , ORAL
     Route: 048
     Dates: start: 20120728
  2. VICTRELIS [Suspect]
     Indication: HEPATITIS C
     Dosage: UNK, ORAL
  3. PEGASYS  (PEGINTERFERON ALFA-2A) [Concomitant]

REACTIONS (2)
  - Asthenia [None]
  - Fatigue [None]
